FAERS Safety Report 7275700-9 (Version None)
Quarter: 2011Q1

REPORT INFORMATION
  Report Type: 
  Country: None (occurrence: None)
  Receive Date: 20110204
  Receipt Date: 20110202
  Transmission Date: 20110831
  Serious: Yes (Hospitalization)
  Sender: FDA-Public Use
  Company Number: IT-PFIZER INC-2011024598

PATIENT
  Age: 14 Year
  Sex: Male

DRUGS (2)
  1. XANAX [Suspect]
     Indication: INSOMNIA
  2. XANAX [Suspect]
     Indication: ANXIETY
     Dosage: 0.50MG TOTAL
     Route: 048
     Dates: start: 20100713, end: 20100713

REACTIONS (2)
  - BRADYPHRENIA [None]
  - MEDICATION ERROR [None]
